FAERS Safety Report 21539186 (Version 1)
Quarter: 2022Q4

REPORT INFORMATION
  Report Type: Spontaneous
  Country: FR (occurrence: FR)
  Receive Date: 20221102
  Receipt Date: 20221102
  Transmission Date: 20230112
  Serious: Yes (Other)
  Sender: FDA-Public Use
  Company Number: None

PATIENT
  Age: 31 Year
  Sex: Female

DRUGS (2)
  1. METHOTREXATE [Interacting]
     Active Substance: METHOTREXATE
     Indication: Systemic lupus erythematosus
     Dosage: THERAPY END DATE : NASK, UNIT DOSE : 17.5 MG, FREQUENCY TIME : 1 WEEK
     Dates: start: 20220808
  2. KEPPRA [Interacting]
     Active Substance: LEVETIRACETAM
     Indication: Epilepsy
     Dosage: UNIT DOSE : 2000 MG, FREQUENCY TIME : 1 DAY
     Route: 065

REACTIONS (3)
  - Epilepsy [Unknown]
  - Symptom recurrence [Unknown]
  - Drug interaction [Unknown]

NARRATIVE: CASE EVENT DATE: 20220801
